FAERS Safety Report 8978105 (Version 1)
Quarter: 2012Q4

REPORT INFORMATION
  Report Type: 
  Country: GB (occurrence: GB)
  Receive Date: 20121220
  Receipt Date: 20121220
  Transmission Date: 20130627
  Serious: Yes (Death)
  Sender: FDA-Public Use
  Company Number: PHHY2012GB116711

PATIENT
  Age: 74 Year
  Sex: Male

DRUGS (8)
  1. METFORMIN [Suspect]
     Indication: HYPERGLYCAEMIA
     Dates: end: 20111009
  2. FRUSEMIDE [Suspect]
     Indication: FLUID RETENTION
  3. ASPIRIN [Concomitant]
     Indication: PRODUCT USED FOR UNKNOWN INDICATION
     Dosage: UNK UKN, UNK
  4. SIMVASTATIN [Concomitant]
     Indication: PRODUCT USED FOR UNKNOWN INDICATION
     Dosage: UNK UKN, UNK
  5. LANSOPRAZOL [Concomitant]
     Indication: PRODUCT USED FOR UNKNOWN INDICATION
  6. BISOPROLOL [Concomitant]
     Indication: PRODUCT USED FOR UNKNOWN INDICATION
     Dosage: UNK UKN, UNK
  7. TRAMADOL [Concomitant]
     Indication: PRODUCT USED FOR UNKNOWN INDICATION
     Dosage: UNK UKN, UNK
  8. DIGOXIN [Concomitant]
     Indication: ATRIAL FIBRILLATION

REACTIONS (4)
  - Lactic acidosis [Fatal]
  - Glomerular filtration rate decreased [Fatal]
  - Blood glucose decreased [Fatal]
  - Eating disorder [Unknown]
